FAERS Safety Report 22367117 (Version 1)
Quarter: 2023Q2

REPORT INFORMATION
  Report Type: Spontaneous
  Country: US (occurrence: US)
  Receive Date: 20230525
  Receipt Date: 20230525
  Transmission Date: 20230722
  Serious: No
  Sender: FDA-Public Use
  Company Number: US-Calliditas-2023CAL00495

PATIENT
  Age: 46 Year
  Sex: Male

DRUGS (1)
  1. TARPEYO [Suspect]
     Active Substance: BUDESONIDE
     Indication: Haematuria
     Dosage: 16 MG (4 MG CAPSULES) ONCE DAILY
     Route: 048
     Dates: start: 20230414

REACTIONS (8)
  - Joint swelling [Unknown]
  - Peripheral swelling [Unknown]
  - Hypertension [Unknown]
  - Headache [Unknown]
  - Increased appetite [Unknown]
  - Insomnia [Unknown]
  - Intentional underdose [Unknown]
  - Off label use [Unknown]
